FAERS Safety Report 4575367-4 (Version None)
Quarter: 2005Q1

REPORT INFORMATION
  Report Type: 
  Country: None (occurrence: None)
  Receive Date: 20050209
  Receipt Date: 20050208
  Transmission Date: 20050727
  Serious: Yes (Death)
  Sender: FDA-Public Use
  Company Number: PHBS2005FI01962

PATIENT

DRUGS (1)
  1. CLOZARIL [Suspect]
     Route: 048
     Dates: end: 20000101

REACTIONS (1)
  - WHITE BLOOD CELL COUNT DECREASED [None]
